FAERS Safety Report 8408603 (Version 4)
Quarter: 2013Q1

REPORT INFORMATION
  Report Type: Spontaneous
  Country: CA (occurrence: CA)
  Receive Date: 20120216
  Receipt Date: 20130208
  Transmission Date: 20140127
  Serious: Yes (Life-Threatening, Hospitalization, Disabling, Other)
  Sender: FDA-Public Use
  Company Number: CA-JNJFOC-20120205675

PATIENT
  Sex: Female
  Weight: 63.5 kg

DRUGS (3)
  1. RISPERDAL CONSTA [Suspect]
     Indication: PSYCHOTIC DISORDER
     Route: 030
     Dates: start: 201109
  2. CONCERTA [Suspect]
     Indication: PSYCHOTIC DISORDER
     Dosage: 50 (UNIT UNSPECIFIED)
     Route: 048
     Dates: start: 201109
  3. CLONAZEPAM [Concomitant]
     Indication: PRODUCT USED FOR UNKNOWN INDICATION
     Dosage: 0.5 (UNIT UNSPECIFIED (S.I.C))
     Route: 065
     Dates: start: 201109

REACTIONS (2)
  - Hodgkin^s disease [Not Recovered/Not Resolved]
  - Inappropriate schedule of drug administration [Not Recovered/Not Resolved]
